FAERS Safety Report 4268671-0 (Version None)
Quarter: 2004Q1

REPORT INFORMATION
  Report Type: 
  Country: None (occurrence: None)
  Receive Date: 20040108
  Receipt Date: 20031226
  Transmission Date: 20041129
  Serious: Yes (Hospitalization, Other)
  Sender: FDA-Public Use
  Company Number: 2003126845

PATIENT
  Age: 68 Year
  Sex: Female

DRUGS (7)
  1. UNASYN [Suspect]
     Indication: ILL-DEFINED DISORDER
     Dosage: 3 GRAM, (BID), INTRAVENOUS
     Route: 042
     Dates: start: 20031129, end: 20031201
  2. VANCOMYCIN HCL [Suspect]
     Indication: ILL-DEFINED DISORDER
     Dosage: 1 GRAM (QID), ORAL
     Route: 048
     Dates: start: 20031202, end: 20031201
  3. CEFPIROME SULFATE (CEFPIROME SULFATE) [Concomitant]
  4. FOSFOMYCIN SODIUM (FOSFOMYCIN SODIUM) [Concomitant]
  5. MINOCYCLINE HYDROCHLORIDE [Concomitant]
  6. AMLODIPINE BESYLATE [Concomitant]
  7. ATORVASTATIN (ATORVASTATIN) [Concomitant]

REACTIONS (6)
  - ALANINE AMINOTRANSFERASE INCREASED [None]
  - ASPARTATE AMINOTRANSFERASE INCREASED [None]
  - C-REACTIVE PROTEIN INCREASED [None]
  - CLOSTRIDIUM COLITIS [None]
  - PYREXIA [None]
  - URTICARIA [None]
